FAERS Safety Report 8439155-0 (Version None)
Quarter: 2012Q2

REPORT INFORMATION
  Report Type: 
  Country: None (occurrence: None)
  Receive Date: 20120615
  Receipt Date: 20120611
  Transmission Date: 20120825
  Serious: Yes (Other)
  Sender: FDA-Public Use
  Company Number: US-BAYER-2012-058665

PATIENT

DRUGS (3)
  1. ADVIL PM [Concomitant]
  2. ALEVE (CAPLET) [Suspect]
     Route: 048
  3. NYQUIL [Concomitant]

REACTIONS (1)
  - DRUG DEPENDENCE [None]
